FAERS Safety Report 22349921 (Version 1)
Quarter: 2023Q2

REPORT INFORMATION
  Report Type: Spontaneous
  Country: US (occurrence: None)
  Receive Date: 20230522
  Receipt Date: 20230522
  Transmission Date: 20230722
  Serious: Yes (Hospitalization, Other)
  Sender: FDA-Public Use
  Company Number: 2023A113083

PATIENT
  Age: 22505 Day
  Sex: Male

DRUGS (3)
  1. FARXIGA [Suspect]
     Active Substance: DAPAGLIFLOZIN PROPANEDIOL
     Indication: Type 2 diabetes mellitus
     Dosage: DAILY
     Route: 048
     Dates: start: 202203, end: 202211
  2. RYBELSUS [Concomitant]
     Active Substance: SEMAGLUTIDE
     Dates: end: 202212
  3. METFORMIN [Concomitant]
     Active Substance: METFORMIN HYDROCHLORIDE

REACTIONS (10)
  - Infection [Unknown]
  - Perineal infection [Unknown]
  - Hypotension [Unknown]
  - Skin necrosis [Unknown]
  - Loss of consciousness [Unknown]
  - Presyncope [Unknown]
  - Erythema [Unknown]
  - Coccydynia [Unknown]
  - Mass [Unknown]
  - Wound [Unknown]

NARRATIVE: CASE EVENT DATE: 20220923
